FAERS Safety Report 5915662-7 (Version None)
Quarter: 2008Q4

REPORT INFORMATION
  Report Type: 
  Country: None (occurrence: None)
  Receive Date: 20081010
  Receipt Date: 20081001
  Transmission Date: 20090506
  Serious: Yes (Life-Threatening, Hospitalization, Other)
  Sender: FDA-Public Use
  Company Number: JP-PFIZER INC-2008082261

PATIENT
  Sex: Female
  Weight: 47 kg

DRUGS (11)
  1. SU-011,248 [Suspect]
     Indication: RENAL CELL CARCINOMA
     Dosage: DAILY DOSE:50MG
     Route: 048
     Dates: start: 20080821
  2. DEPAS [Concomitant]
     Route: 048
  3. FENTANYL [Concomitant]
     Route: 062
  4. VOLTAREN [Concomitant]
     Dates: start: 20080907
  5. NOVAMIN [Concomitant]
     Route: 048
     Dates: end: 20080911
  6. MAGNESIUM OXIDE [Concomitant]
     Route: 048
     Dates: end: 20080911
  7. PURSENNID [Concomitant]
     Route: 048
     Dates: end: 20080911
  8. FAMOTIDINE [Concomitant]
     Dosage: TEXT:PO/IV
  9. MORPHINE HCL ELIXIR [Concomitant]
     Route: 048
  10. DECADRON [Concomitant]
  11. BETAMETHASONE [Concomitant]
     Route: 042

REACTIONS (7)
  - ANOREXIA [None]
  - HEPATIC FUNCTION ABNORMAL [None]
  - NEUTROPHIL COUNT DECREASED [None]
  - OESOPHAGITIS [None]
  - PLATELET COUNT DECREASED [None]
  - PYREXIA [None]
  - WHITE BLOOD CELL COUNT DECREASED [None]
